FAERS Safety Report 7512257-9 (Version None)
Quarter: 2011Q2

REPORT INFORMATION
  Report Type: 
  Country: None (occurrence: None)
  Receive Date: 20110531
  Receipt Date: 20110520
  Transmission Date: 20111010
  Serious: Yes (Life-Threatening)
  Sender: FDA-Public Use
  Company Number: FR-BAXTER-2011BH017150

PATIENT
  Age: 74 Year
  Sex: Male

DRUGS (13)
  1. GELOFUSINE [Suspect]
     Indication: VASCULAR OPERATION
     Route: 042
     Dates: start: 20110504, end: 20110504
  2. ATRACURIUM BESYLATE [Suspect]
     Indication: GENERAL ANAESTHESIA
     Route: 042
     Dates: start: 20110504, end: 20110504
  3. PROPOFOL [Suspect]
     Indication: GENERAL ANAESTHESIA
     Route: 042
     Dates: start: 20110504, end: 20110504
  4. KETAMINE HCL [Suspect]
     Indication: GENERAL ANAESTHESIA
     Route: 040
     Dates: start: 20110504, end: 20110504
  5. EPHEDRINE [Suspect]
     Indication: HYPOTENSION
     Route: 042
     Dates: start: 20110504, end: 20110504
  6. NEOSYNEPHRINE [Suspect]
     Indication: HYPOTENSION
     Route: 042
     Dates: start: 20110504, end: 20110504
  7. CEFAZOLIN [Suspect]
     Indication: ANTIBIOTIC PROPHYLAXIS
     Route: 040
     Dates: start: 20110504, end: 20110504
  8. CEFAZOLIN [Suspect]
     Route: 055
     Dates: start: 20110504, end: 20110504
  9. VOLUVEN [Suspect]
     Indication: VASCULAR OPERATION
     Route: 065
     Dates: start: 20110505
  10. CALCIUM CHLORURE [Suspect]
     Indication: VASCULAR OPERATION
     Route: 042
     Dates: start: 20110504, end: 20110504
  11. SUPRANE [Suspect]
     Indication: VASCULAR OPERATION
     Route: 055
     Dates: start: 20110504, end: 20110504
  12. ULTIVA [Suspect]
     Indication: GENERAL ANAESTHESIA
     Route: 042
     Dates: start: 20110504, end: 20110504
  13. VOLUVEN [Suspect]
     Route: 042
     Dates: start: 20110504, end: 20110504

REACTIONS (2)
  - ANAPHYLACTOID SHOCK [None]
  - GENERALISED ERYTHEMA [None]
